FAERS Safety Report 7760246-1 (Version None)
Quarter: 2011Q3

REPORT INFORMATION
  Report Type: 
  Country: None (occurrence: None)
  Receive Date: 20110919
  Receipt Date: 20110908
  Transmission Date: 20111222
  Serious: Yes (Hospitalization)
  Sender: FDA-Public Use
  Company Number: DE-GLAXOSMITHKLINE-B0729062A

PATIENT
  Sex: Female
  Weight: 55 kg

DRUGS (3)
  1. LAPATINIB [Suspect]
     Indication: BREAST CANCER
     Dosage: 1250MG PER DAY
     Route: 048
     Dates: start: 20110606
  2. PACLITAXEL [Suspect]
     Indication: BREAST CANCER
     Dosage: 259MG EVERY 3 WEEKS
     Route: 042
     Dates: start: 20110606
  3. DOXORUBICIN HCL [Suspect]
     Indication: BREAST CANCER
     Dosage: 88.8MG EVERY 3 WEEKS
     Route: 042
     Dates: start: 20110606

REACTIONS (2)
  - FEBRILE NEUTROPENIA [None]
  - GENERAL PHYSICAL HEALTH DETERIORATION [None]
